FAERS Safety Report 7824891-7 (Version None)
Quarter: 2011Q4

REPORT INFORMATION
  Report Type: 
  Country: None (occurrence: None)
  Receive Date: 20111019
  Receipt Date: 20110216
  Transmission Date: 20120403
  Serious: No
  Sender: FDA-Public Use
  Company Number: US-BRISTOL-MYERS SQUIBB COMPANY-15555022

PATIENT
  Age: 54 Year
  Sex: Female
  Weight: 160 kg

DRUGS (4)
  1. AVALIDE [Suspect]
     Dosage: 1 DF = 300/12.5 MG;TAKEN ATLEAST 10YEARS;
  2. CELEBREX [Concomitant]
  3. VICODIN [Concomitant]
  4. KLONOPIN [Concomitant]

REACTIONS (2)
  - DIZZINESS [None]
  - JOINT SWELLING [None]
